FAERS Safety Report 12378932 (Version 1)
Quarter: 2016Q2

REPORT INFORMATION
  Report Type: Spontaneous
  Country: US (occurrence: US)
  Receive Date: 20160517
  Receipt Date: 20160517
  Transmission Date: 20160815
  Serious: No
  Sender: FDA-Public Use
  Company Number: US-RELYPSA-RLY2016000257

PATIENT

DRUGS (12)
  1. VELTASSA [Suspect]
     Active Substance: PATIROMER
     Dosage: 16.8 G, QD
     Route: 048
  2. VITAMIN B12 [Concomitant]
     Active Substance: CYANOCOBALAMIN
  3. VITAMIN B COMPLEX WITH C [Concomitant]
     Active Substance: ASCORBIC ACID\CALCIUM PANTOTHENATE\CYANOCOBALAMIN\NIACINAMIDE\PYRIDOXINE HYDROCHLORIDE\RIBOFLAVIN\THIAMINE MONONITRATE
  4. SENOKOT [Concomitant]
     Active Substance: SENNOSIDES
  5. XANAX [Concomitant]
     Active Substance: ALPRAZOLAM
  6. ATENOLOL. [Concomitant]
     Active Substance: ATENOLOL
  7. AMLODIPINE BESYLATE. [Concomitant]
     Active Substance: AMLODIPINE BESYLATE
  8. PREDNISONE. [Concomitant]
     Active Substance: PREDNISONE
  9. ASPIRIN 81 [Concomitant]
     Active Substance: ASPIRIN
  10. ALLOPURINOL. [Concomitant]
     Active Substance: ALLOPURINOL
  11. VELTASSA [Suspect]
     Active Substance: PATIROMER
     Indication: HYPERKALAEMIA
     Dosage: 8.4 G, QD
     Route: 048
     Dates: start: 20160315
  12. LOSARTAN POTASSIUM/HCTZ [Concomitant]

REACTIONS (1)
  - Blood potassium increased [Recovered/Resolved]
